FAERS Safety Report 5174760-9 (Version None)
Quarter: 2006Q4

REPORT INFORMATION
  Report Type: 
  Country: None (occurrence: None)
  Receive Date: 20061214
  Receipt Date: 20060612
  Transmission Date: 20070319
  Serious: No
  Sender: FDA-Public Use
  Company Number: US-AMGEN-KDL182785

PATIENT
  Sex: Female

DRUGS (2)
  1. ENBREL [Suspect]
     Indication: PSORIATIC ARTHROPATHY
     Route: 058
     Dates: start: 20060315
  2. METHOTREXATE [Concomitant]
     Dates: start: 20051001

REACTIONS (4)
  - ABDOMINAL PAIN [None]
  - FATIGUE [None]
  - INCONTINENCE [None]
  - URINARY RETENTION [None]
